FAERS Safety Report 8804228 (Version 1)
Quarter: 2012Q4

REPORT INFORMATION
  Report Type: 
  Country: US (occurrence: US)
  Receive Date: 20120924
  Receipt Date: 20120924
  Transmission Date: 20130627
  Serious: Yes (Hospitalization)
  Sender: FDA-Public Use
  Company Number: US-BAYER-2012-097461

PATIENT
  Age: 30 Year
  Sex: Female
  Weight: 90.7 kg

DRUGS (14)
  1. BEYAZ [Suspect]
     Indication: PREMENSTRUAL SYNDROME
     Dosage: UNK
     Dates: start: 20101202, end: 20101223
  2. BEYAZ [Suspect]
     Indication: HAEMORRHAGE
  3. BEYAZ [Suspect]
     Indication: PAIN
  4. DOXYCYCLINE HYCLATE [DOXYCYCLINE HYDROCHLORIDE] [Concomitant]
     Dosage: 100 mg, 1 tablet every 12 hours for 10 days
  5. TRAMADOL HYDROCHLORIDE [Concomitant]
     Dosage: 50 mg, 1 tablet 3 times daily as needed
  6. OMEPRAZOLE [Concomitant]
     Dosage: 40 mg, daily
  7. PROMETHAZINE [Concomitant]
     Indication: NAUSEA
     Dosage: 25 mg, 1 tablet every 6 hours as needed
  8. EXCEDRIN MIGRAINE [Concomitant]
     Indication: MIGRAINE
     Dosage: 250 mg, UNK
     Dates: start: 20101201
  9. ALEVE [Concomitant]
     Dosage: 220 mg, UNK
     Dates: start: 20101201
  10. ZYRTEC [Concomitant]
     Indication: HYPERSENSITIVITY
     Dosage: 10 mg, UNK
     Dates: start: 20101201
  11. SUDAFED [Concomitant]
  12. AMOXICILLIN [Concomitant]
     Indication: SINUSITIS
  13. SENNA-S [Concomitant]
  14. TYLENOL [Concomitant]

REACTIONS (10)
  - Pulmonary embolism [None]
  - Pulmonary infarction [None]
  - Flank pain [None]
  - Chest pain [None]
  - Presyncope [None]
  - Dyspnoea [None]
  - Mental disorder [None]
  - Fear [None]
  - Nightmare [None]
  - Anxiety [None]
